FAERS Safety Report 6357295-7 (Version None)
Quarter: 2009Q3

REPORT INFORMATION
  Report Type: 
  Country: None (occurrence: None)
  Receive Date: 20090916
  Receipt Date: 20090907
  Transmission Date: 20100115
  Serious: Yes (Other)
  Sender: FDA-Public Use
  Company Number: PHHY2009NO38502

PATIENT
  Age: 61 Year
  Sex: Male

DRUGS (1)
  1. VOLTAREN [Suspect]
     Indication: BACK PAIN

REACTIONS (6)
  - DYSPHONIA [None]
  - ERYTHEMA [None]
  - HEART RATE INCREASED [None]
  - OCULAR HYPERAEMIA [None]
  - RASH GENERALISED [None]
  - THIRST [None]
